FAERS Safety Report 20743783 (Version 2)
Quarter: 2022Q2

REPORT INFORMATION
  Report Type: Spontaneous
  Country: RO (occurrence: RO)
  Receive Date: 20220425
  Receipt Date: 20220429
  Transmission Date: 20220721
  Serious: Yes (Other)
  Sender: FDA-Public Use
  Company Number: RO-MEDO2008-L202204015

PATIENT
  Age: 61 Year
  Sex: Male

DRUGS (8)
  1. DEXAMETHASONE [Suspect]
     Active Substance: DEXAMETHASONE
     Indication: COVID-19
     Dosage: 24 MG/DAY AT FIRST, THEN GRADUALLY TAPERED UNTIL CESSATION 14 DAYS LATER
     Route: 042
     Dates: start: 2021, end: 2021
  2. DEXAMETHASONE [Suspect]
     Active Substance: DEXAMETHASONE
     Dosage: 24 MG/DAY AT FIRST, THEN GRADUALLY TAPERED UNTIL CESSATION 14 DAYS LATER
     Route: 042
     Dates: start: 2021, end: 2021
  3. DEXAMETHASONE [Suspect]
     Active Substance: DEXAMETHASONE
     Dosage: 8 MG/DAY, TAPERED UNTIL CESSATION 14 DAYS LATER
     Route: 065
     Dates: start: 2021, end: 2021
  4. DEXAMETHASONE [Suspect]
     Active Substance: DEXAMETHASONE
     Dosage: 8 MG/DAY, TAPERED UNTIL CESSATION 14 DAYS LATER
     Route: 065
     Dates: start: 2021, end: 2021
  5. REMDESIVIR [Concomitant]
     Active Substance: REMDESIVIR
     Indication: Antiviral treatment
     Dates: start: 2021, end: 2021
  6. MEROPENEM [Concomitant]
     Active Substance: MEROPENEM
     Indication: Evidence based treatment
  7. LINEZOLID [Concomitant]
     Active Substance: LINEZOLID
     Indication: Evidence based treatment
     Dates: start: 2021, end: 2021
  8. OXYGEN [Concomitant]
     Active Substance: OXYGEN
     Indication: Product used for unknown indication
     Dates: start: 2021, end: 2021

REACTIONS (1)
  - Pulmonary mucormycosis [Recovered/Resolved]
